FAERS Safety Report 17361341 (Version 1)
Quarter: 2020Q1

REPORT INFORMATION
  Report Type: Other
  Country: US (occurrence: US)
  Receive Date: 20200203
  Receipt Date: 20200203
  Transmission Date: 20200409
  Serious: No
  Sender: FDA-Public Use
  Company Number: US-CSPC OUYI PHARMACEUTICAL CO., LTD.-2079729

PATIENT

DRUGS (1)
  1. METFORMIN HYDROCHLORIDE EXTEND-RELEASE [Suspect]
     Active Substance: METFORMIN HYDROCHLORIDE
     Route: 048
     Dates: start: 20170828

REACTIONS (2)
  - Diarrhoea [None]
  - Blood glucose abnormal [None]

NARRATIVE: CASE EVENT DATE: 20171121
